FAERS Safety Report 7678181-6 (Version None)
Quarter: 2011Q3

REPORT INFORMATION
  Report Type: 
  Country: None (occurrence: None)
  Receive Date: 20110811
  Receipt Date: 20110801
  Transmission Date: 20111222
  Serious: Yes (Other)
  Sender: FDA-Public Use
  Company Number: BR-GENZYME-POMP-1001677

PATIENT
  Sex: Female
  Weight: 74 kg

DRUGS (1)
  1. MYOZYME [Suspect]
     Indication: GLYCOGEN STORAGE DISEASE TYPE II
     Dosage: 10 MG/KG, QW
     Route: 042

REACTIONS (4)
  - RASH GENERALISED [None]
  - URTICARIA [None]
  - PULMONARY CONGESTION [None]
  - DYSPNOEA [None]
